FAERS Safety Report 9646041 (Version 2)
Quarter: 2014Q2

REPORT INFORMATION
  Report Type: Spontaneous
  Country: US (occurrence: None)
  Receive Date: 20131023
  Receipt Date: 20140507
  Transmission Date: 20141212
  Serious: Yes (Hospitalization)
  Sender: FDA-Public Use
  Company Number: 2013-US-001917

PATIENT
  Age: 28 Year
  Sex: Female

DRUGS (1)
  1. XYREM [Suspect]
     Indication: INSOMNIA
     Route: 048
     Dates: start: 20130103, end: 2013

REACTIONS (2)
  - Meningitis bacterial [None]
  - Off label use [None]
